FAERS Safety Report 11497642 (Version 1)
Quarter: 2015Q3

REPORT INFORMATION
  Report Type: Spontaneous
  Country: FR (occurrence: FR)
  Receive Date: 20150911
  Receipt Date: 20150911
  Transmission Date: 20151125
  Serious: Yes (Hospitalization)
  Sender: FDA-Public Use
  Company Number: FR-CONCORDIA PHARMACEUTICALS INC.-CO-UX-FR-2015-031

PATIENT
  Age: 74 Year
  Sex: Male

DRUGS (14)
  1. LASILIX [Concomitant]
     Active Substance: FUROSEMIDE
  2. CORTANCYL [Concomitant]
     Active Substance: PREDNISONE
  3. BACTRIM [Concomitant]
     Active Substance: SULFAMETHOXAZOLE\TRIMETHOPRIM
  4. TAHOR [Concomitant]
     Active Substance: ATORVASTATIN CALCIUM
  5. KARDEGIC [Concomitant]
     Active Substance: ASPIRIN LYSINE
  6. EUPANTOL [Concomitant]
     Active Substance: PANTOPRAZOLE SODIUM
  7. BELATACEPT [Concomitant]
     Active Substance: BELATACEPT
  8. EUPRESSYL [Concomitant]
     Active Substance: URAPIDIL
  9. ARANESP [Concomitant]
     Active Substance: DARBEPOETIN ALFA
  10. CELLCEPT [Concomitant]
     Active Substance: MYCOPHENOLATE MOFETIL\MYCOPHENOLATE MOFETIL HYDROCHLORIDE
  11. LEDERFOLINE [Concomitant]
     Active Substance: LEUCOVORIN CALCIUM
  12. AMLOR [Concomitant]
     Active Substance: AMLODIPINE BESYLATE
  13. XATRAL [Suspect]
     Active Substance: ALFUZOSIN
     Route: 048
     Dates: start: 20150205, end: 20150210
  14. LEVOTHYROX [Concomitant]
     Active Substance: LEVOTHYROXINE

REACTIONS (2)
  - Leukopenia [Recovered/Resolved]
  - Agranulocytosis [Recovered/Resolved]

NARRATIVE: CASE EVENT DATE: 20150210
